FAERS Safety Report 8127139-1 (Version None)
Quarter: 2011Q4

REPORT INFORMATION
  Report Type: 
  Country: None (occurrence: None)
  Receive Date: 20111227
  Receipt Date: 20110920
  Transmission Date: 20120403
  Serious: No
  Sender: FDA-Public Use
  Company Number: PHHY2011US30379

PATIENT
  Age: 54 Year
  Sex: Female

DRUGS (3)
  1. GILENYA [Suspect]
     Indication: MULTIPLE SCLEROSIS
     Dosage: 0.5 MG, QD, ORAL
     Route: 048
     Dates: start: 20110401
  2. VITAMIN D [Concomitant]
  3. BONIVA [Concomitant]

REACTIONS (6)
  - HYPOAESTHESIA [None]
  - PLATELET COUNT DECREASED [None]
  - DIZZINESS [None]
  - FATIGUE [None]
  - MULTIPLE SCLEROSIS RELAPSE [None]
  - IMPAIRED HEALING [None]
